FAERS Safety Report 15394958 (Version 2)
Quarter: 2018Q4

REPORT INFORMATION
  Report Type: Report from Study
  Country: US (occurrence: US)
  Receive Date: 20180918
  Receipt Date: 20181220
  Transmission Date: 20190204
  Serious: No
  Sender: FDA-Public Use
  Company Number: PHEH2018US038374

PATIENT
  Age: 16 Year
  Sex: Male

DRUGS (1)
  1. OMNITROPE [Suspect]
     Active Substance: SOMATROPIN
     Indication: GROWTH HORMONE DEFICIENCY
     Dosage: 0.7 MG, QD
     Route: 058
     Dates: start: 20150807, end: 20180910

REACTIONS (2)
  - Incorrect dose administered by device [Unknown]
  - Device breakage [Unknown]

NARRATIVE: CASE EVENT DATE: 20180905
